FAERS Safety Report 4684693-X (Version None)
Quarter: 2005Q2

REPORT INFORMATION
  Report Type: 
  Country: None (occurrence: None)
  Receive Date: 20050607
  Receipt Date: 20050527
  Transmission Date: 20051028
  Serious: Yes (Other)
  Sender: FDA-Public Use
  Company Number: GB-MERCK-0506GBR00005

PATIENT
  Age: 67 Year
  Sex: Male

DRUGS (1)
  1. COZAAR [Suspect]
     Indication: HYPERTENSION
     Route: 048
     Dates: start: 20050418

REACTIONS (1)
  - GUTTATE PSORIASIS [None]
